FAERS Safety Report 25699525 (Version 1)
Quarter: 2025Q3

REPORT INFORMATION
  Report Type: Spontaneous
  Country: EU (occurrence: EU)
  Receive Date: 20250819
  Receipt Date: 20250819
  Transmission Date: 20251021
  Serious: Yes (Death, Life-Threatening, Other)
  Sender: PHARMOBEDIENT CONSULTING, LLC
  Company Number: EU-Pharmobedient-000084

PATIENT
  Age: 22 Year
  Sex: Male
  Weight: 0 kg

DRUGS (4)
  1. PAROXETINE [Interacting]
     Active Substance: PAROXETINE
     Indication: Product used for unknown indication
  2. QUETIAPINE FUMARATE [Interacting]
     Active Substance: QUETIAPINE FUMARATE
     Indication: Product used for unknown indication
  3. ALPRAZOLAM [Interacting]
     Active Substance: ALPRAZOLAM
     Indication: Product used for unknown indication
  4. CLOZAPINE [Interacting]
     Active Substance: CLOZAPINE
     Indication: Product used for unknown indication

REACTIONS (6)
  - Toxicity to various agents [Fatal]
  - Overdose [Fatal]
  - Poisoning deliberate [Fatal]
  - Drug interaction [Fatal]
  - Completed suicide [Fatal]
  - Intentional self-injury [Fatal]
